FAERS Safety Report 14276190 (Version 6)
Quarter: 2024Q2

REPORT INFORMATION
  Report Type: Spontaneous
  Country: BE (occurrence: BE)
  Receive Date: 20171212
  Receipt Date: 20240401
  Transmission Date: 20240716
  Serious: Yes (Death, Hospitalization, Other)
  Sender: FDA-Public Use
  Company Number: None

PATIENT
  Age: 27 Year
  Sex: Female

DRUGS (14)
  1. MYCOPHENOLATE MOFETIL [Suspect]
     Active Substance: MYCOPHENOLATE MOFETIL
     Indication: Prophylaxis against graft versus host disease
  2. TACROLIMUS [Suspect]
     Active Substance: TACROLIMUS
     Indication: Prophylaxis against graft versus host disease
  3. FLUDARABINE [Suspect]
     Active Substance: FLUDARABINE PHOSPHATE
     Indication: Bone marrow conditioning regimen
  4. CYCLOPHOSPHAMIDE [Suspect]
     Active Substance: CYCLOPHOSPHAMIDE
     Indication: Bone marrow conditioning regimen
  5. VALGANCICLOVIR HYDROCHLORIDE [Suspect]
     Active Substance: VALGANCICLOVIR HYDROCHLORIDE
     Indication: Cytomegalovirus infection reactivation
  6. BUSULFAN [Suspect]
     Active Substance: BUSULFAN
     Indication: Bone marrow conditioning regimen
  7. THYMOCYTE IMMUNE GLOBULIN NOS [Suspect]
     Active Substance: THYMOCYTE IMMUNE GLOBULIN NOS
     Indication: Bone marrow conditioning regimen
  8. POSACONAZOLE [Suspect]
     Active Substance: POSACONAZOLE
     Indication: Oral candidiasis
     Route: 065
  9. FOSCAVIR [Concomitant]
     Active Substance: FOSCARNET SODIUM
  10. URSODIOL [Concomitant]
     Active Substance: URSODIOL
     Indication: Product used for unknown indication
  11. PIPERACILLIN SODIUM\TAZOBACTAM SODIUM [Concomitant]
     Active Substance: PIPERACILLIN SODIUM\TAZOBACTAM SODIUM
     Indication: Product used for unknown indication
     Route: 065
  12. CEFTAZIDIME [Concomitant]
     Active Substance: CEFTAZIDIME
     Indication: Product used for unknown indication
  13. CASPOFUNGIN [Concomitant]
     Active Substance: CASPOFUNGIN
     Indication: Product used for unknown indication
  14. METRONIDAZOLE [Concomitant]
     Active Substance: METRONIDAZOLE
     Indication: Product used for unknown indication
     Route: 065

REACTIONS (25)
  - Hepatic pain [Fatal]
  - Pyrexia [Fatal]
  - Pain [Unknown]
  - Neutropenia [Fatal]
  - Myelosuppression [Fatal]
  - Oral candidiasis [Fatal]
  - Ascites [Unknown]
  - Hepatomegaly [Fatal]
  - Off label use [Unknown]
  - Disseminated intravascular coagulation [Fatal]
  - Pancytopenia [Fatal]
  - Rash [Fatal]
  - Toxicity to various agents [Unknown]
  - Adenoviral hepatitis [Fatal]
  - Diarrhoea [Fatal]
  - Venoocclusive liver disease [Unknown]
  - Cholestasis [Fatal]
  - Hepatic failure [Fatal]
  - Cytomegalovirus infection reactivation [Fatal]
  - Staphylococcal sepsis [Fatal]
  - Hepatic necrosis [Fatal]
  - Oedema [Fatal]
  - Liver function test abnormal [Unknown]
  - Haemorrhage [Fatal]
  - Hepatic cytolysis [Fatal]
